FAERS Safety Report 4623681-6 (Version None)
Quarter: 2005Q2

REPORT INFORMATION
  Report Type: 
  Country: None (occurrence: None)
  Receive Date: 20050325
  Receipt Date: 20050110
  Transmission Date: 20051028
  Serious: No
  Sender: FDA-Public Use
  Company Number: USA041081524

PATIENT
  Age: 93 Year
  Sex: Female

DRUGS (1)
  1. FORTEO [Suspect]
     Indication: BONE DISORDER
     Dosage: 20 UG/ 1 DAY
     Dates: start: 20041014

REACTIONS (6)
  - ARTHROPATHY [None]
  - DYSKINESIA [None]
  - INJECTION SITE HAEMORRHAGE [None]
  - MIDDLE INSOMNIA [None]
  - MUSCLE SPASMS [None]
  - TRIGGER FINGER [None]
